FAERS Safety Report 9384368 (Version 2)
Quarter: 2013Q3

REPORT INFORMATION
  Report Type: Spontaneous
  Country: IN (occurrence: IN)
  Receive Date: 20130705
  Receipt Date: 20130709
  Transmission Date: 20140515
  Serious: Yes (Other)
  Sender: FDA-Public Use
  Company Number: PHHY2013IN068070

PATIENT
  Age: 19 Year
  Sex: Male

DRUGS (5)
  1. CLOFAZIMINE [Suspect]
     Indication: LEPROSY
     Dosage: 100 MG, TID FOR ONE MONTH
  2. CLOFAZIMINE [Suspect]
     Dosage: 100 MG, BID FOR THE NEXT 15 DAYS
  3. DAPSONE [Concomitant]
     Indication: LEPROSY
     Dosage: UNK UKN, UNK
  4. RIFAMPICIN [Concomitant]
     Indication: LEPROSY
  5. CORTICOSTEROIDS [Concomitant]
     Indication: LEPROSY

REACTIONS (8)
  - Gastrointestinal disorder [Recovering/Resolving]
  - Gastrointestinal inflammation [Recovering/Resolving]
  - Abdominal pain [Recovering/Resolving]
  - Histiocytosis [Recovering/Resolving]
  - Lymphadenopathy [Recovering/Resolving]
  - Hypoalbuminaemia [Recovering/Resolving]
  - Hyperglobulinaemia [Recovering/Resolving]
  - Eosinophilia [Recovering/Resolving]
